FAERS Safety Report 8077112-7 (Version None)
Quarter: 2012Q1

REPORT INFORMATION
  Report Type: 
  Country: None (occurrence: None)
  Receive Date: 20120127
  Receipt Date: 20120124
  Transmission Date: 20120608
  Serious: Yes (Death, Life-Threatening)
  Sender: FDA-Public Use
  Company Number: PHHY2012IL006647

PATIENT
  Sex: Female

DRUGS (1)
  1. RITALIN [Suspect]
     Dosage: UNK UKN, DAILY
     Route: 048

REACTIONS (10)
  - FALL [None]
  - AGNOSIA [None]
  - DEPRESSED LEVEL OF CONSCIOUSNESS [None]
  - AFFECTIVE DISORDER [None]
  - ALTERED STATE OF CONSCIOUSNESS [None]
  - HYPERHIDROSIS [None]
  - MUSCLE RIGIDITY [None]
  - SUBACUTE SCLEROSING PANENCEPHALITIS [None]
  - PYREXIA [None]
  - MYOCLONUS [None]
